FAERS Safety Report 22150727 (Version 1)
Quarter: 2023Q1

REPORT INFORMATION
  Report Type: Spontaneous
  Country: US (occurrence: None)
  Receive Date: 20230328
  Receipt Date: 20230328
  Transmission Date: 20230418
  Serious: Yes (Hospitalization)
  Sender: FDA-Public Use
  Company Number: None

PATIENT
  Age: 79 Year
  Sex: Male

DRUGS (1)
  1. PROCRIT [Suspect]
     Active Substance: ERYTHROPOIETIN
     Indication: End stage renal disease
     Dosage: OTHER FREQUENCY : OTHER;?
     Route: 058
     Dates: start: 202301

REACTIONS (1)
  - Fistula repair [None]

NARRATIVE: CASE EVENT DATE: 20230301
